FAERS Safety Report 11683892 (Version 3)
Quarter: 2015Q4

REPORT INFORMATION
  Report Type: Spontaneous
  Country: US (occurrence: US)
  Receive Date: 20151029
  Receipt Date: 20151223
  Transmission Date: 20160304
  Serious: Yes (Hospitalization)
  Sender: FDA-Public Use
  Company Number: US-BAYER-2015-455625

PATIENT
  Age: 74 Year
  Sex: Female
  Weight: 47.62 kg

DRUGS (8)
  1. MAGNEVIST [Suspect]
     Active Substance: GADOPENTETATE DIMEGLUMINE
     Indication: CAROTID ARTERY STENOSIS
     Dosage: 35 ML, ONCE
     Dates: start: 20151026, end: 20151026
  2. SALINE ORAL OTC [Suspect]
     Active Substance: SODIUM CHLORIDE
     Dosage: 20 ML, ONCE
  3. SIMVASTATIN. [Concomitant]
     Active Substance: SIMVASTATIN
  4. ASA [Concomitant]
     Active Substance: ASPIRIN
  5. OXYCODONE [Concomitant]
     Active Substance: OXYCODONE
  6. MAGNEVIST [Suspect]
     Active Substance: GADOPENTETATE DIMEGLUMINE
     Indication: CEREBROVASCULAR ACCIDENT
     Dosage: 35 ML, ONCE, 1.5ML/SEC
     Route: 042
     Dates: start: 20151026, end: 20151026
  7. MAGNEVIST [Suspect]
     Active Substance: GADOPENTETATE DIMEGLUMINE
     Indication: ARTERIOGRAM CAROTID
  8. LACTULOSE. [Concomitant]
     Active Substance: LACTULOSE

REACTIONS (2)
  - Extravasation [Recovered/Resolved]
  - Product use issue [None]

NARRATIVE: CASE EVENT DATE: 20151026
